FAERS Safety Report 7488108-8 (Version None)
Quarter: 2011Q2

REPORT INFORMATION
  Report Type: 
  Country: None (occurrence: None)
  Receive Date: 20110518
  Receipt Date: 20110512
  Transmission Date: 20111010
  Serious: Yes (Hospitalization)
  Sender: FDA-Public Use
  Company Number: DE-ROCHE-763748

PATIENT
  Age: 44 Year
  Sex: Female
  Weight: 60 kg

DRUGS (6)
  1. LAMOTRIGINE [Suspect]
     Route: 048
  2. VENLAFAXINE [Suspect]
     Indication: MAJOR DEPRESSION
     Route: 048
  3. VENLAFAXINE [Suspect]
     Route: 048
  4. DIAZEPAM [Suspect]
     Indication: MAJOR DEPRESSION
     Route: 048
  5. LAMOTRIGINE [Suspect]
     Indication: MAJOR DEPRESSION
     Route: 048
  6. DIAZEPAM [Suspect]
     Route: 048

REACTIONS (9)
  - MYOCLONUS [None]
  - CONVULSION [None]
  - SUICIDE ATTEMPT [None]
  - GRAND MAL CONVULSION [None]
  - OVERDOSE [None]
  - COMA [None]
  - HYPERREFLEXIA [None]
  - MUSCLE RIGIDITY [None]
  - SEROTONIN SYNDROME [None]
